FAERS Safety Report 20474854 (Version 1)
Quarter: 2022Q1

REPORT INFORMATION
  Report Type: Spontaneous
  Country: US (occurrence: None)
  Receive Date: 20220215
  Receipt Date: 20220215
  Transmission Date: 20220423
  Serious: No
  Sender: FDA-Public Use
  Company Number: 2022A050762

PATIENT
  Age: 92 Year
  Sex: Female

DRUGS (1)
  1. CALQUENCE [Suspect]
     Active Substance: ACALABRUTINIB
     Route: 048
     Dates: start: 20211216

REACTIONS (1)
  - White blood cell count increased [Unknown]

NARRATIVE: CASE EVENT DATE: 20220128
